FAERS Safety Report 14782429 (Version 2)
Quarter: 2018Q2

REPORT INFORMATION
  Report Type: Spontaneous
  Country: US (occurrence: US)
  Receive Date: 20180420
  Receipt Date: 20180424
  Transmission Date: 20180711
  Serious: No
  Sender: FDA-Public Use
  Company Number: US-PFIZER INC-2018160632

PATIENT
  Age: 68 Year
  Sex: Female
  Weight: 95.25 kg

DRUGS (1)
  1. ADVIL PM [Suspect]
     Active Substance: DIPHENHYDRAMINE CITRATE\IBUPROFEN
     Indication: SLEEP DISORDER
     Dosage: 2 DF, 1X/DAY (AT BEDTIME/ TOOK THE ADVIL BETWEEN 9:30 AND 10:30PM LAST NIGHT)
     Route: 048
     Dates: start: 20180417

REACTIONS (2)
  - Intentional product misuse [Unknown]
  - Insomnia [Unknown]

NARRATIVE: CASE EVENT DATE: 20180417
